FAERS Safety Report 15458353 (Version 2)
Quarter: 2019Q1

REPORT INFORMATION
  Report Type: Spontaneous
  Country: US (occurrence: US)
  Receive Date: 20181003
  Receipt Date: 20190306
  Transmission Date: 20190417
  Serious: No
  Sender: FDA-Public Use
  Company Number: US-PFIZER INC-2018394454

PATIENT
  Age: 84 Year
  Sex: Female

DRUGS (2)
  1. IBRANCE [Suspect]
     Active Substance: PALBOCICLIB
     Dosage: UNK
     Dates: start: 20170814
  2. IBRANCE [Suspect]
     Active Substance: PALBOCICLIB
     Dosage: SECOND ROUND
     Dates: start: 20180314

REACTIONS (1)
  - Hallucination [Not Recovered/Not Resolved]
